FAERS Safety Report 5479568-2 (Version None)
Quarter: 2007Q3

REPORT INFORMATION
  Report Type: 
  Country: None (occurrence: None)
  Receive Date: 20070906
  Receipt Date: 20070409
  Transmission Date: 20080115
  Serious: Yes (Other)
  Sender: FDA-Public Use
  Company Number: HQWYE062110APR07

PATIENT
  Age: 40 Year
  Sex: Female
  Weight: 61.29 kg

DRUGS (2)
  1. ADVIL [Suspect]
     Indication: DYSMENORRHOEA
     Dosage: ONE OR TWO LIQUI-GELS AS NEEDED, ORAL
     Route: 048
     Dates: start: 20060101, end: 20070403
  2. ADVIL [Suspect]
     Indication: VIRAL INFECTION
     Dosage: ONE OR TWO LIQUI-GELS AS NEEDED, ORAL
     Route: 048
     Dates: start: 20060101, end: 20070403

REACTIONS (4)
  - ANAPHYLACTIC REACTION [None]
  - PRURITUS [None]
  - TINNITUS [None]
  - URTICARIA [None]
